FAERS Safety Report 12921934 (Version 1)
Quarter: 2016Q4

REPORT INFORMATION
  Report Type: Spontaneous
  Country: US (occurrence: US)
  Receive Date: 20161108
  Receipt Date: 20161108
  Transmission Date: 20170207
  Serious: No
  Sender: FDA-Public Use
  Company Number: US-BAUSCH-BL-2016-007043

PATIENT
  Sex: Male

DRUGS (8)
  1. ACYCLOVIR. [Concomitant]
     Active Substance: ACYCLOVIR
     Indication: HERPES OPHTHALMIC
     Route: 048
     Dates: start: 2015
  2. PREDNISOLONE 1% EYE DROP [Concomitant]
     Indication: HERPES OPHTHALMIC
     Route: 047
     Dates: start: 2015
  3. ZIRGAN [Suspect]
     Active Substance: GANCICLOVIR
     Route: 047
  4. METHOTREXATE. [Concomitant]
     Active Substance: METHOTREXATE
     Indication: PRODUCT USED FOR UNKNOWN INDICATION
  5. ZIRGAN [Suspect]
     Active Substance: GANCICLOVIR
     Route: 047
  6. ACYCLOVIR. [Concomitant]
     Active Substance: ACYCLOVIR
     Route: 048
     Dates: start: 2016
  7. HUMIRA [Concomitant]
     Active Substance: ADALIMUMAB
     Indication: PRODUCT USED FOR UNKNOWN INDICATION
  8. ZIRGAN [Suspect]
     Active Substance: GANCICLOVIR
     Indication: HERPES OPHTHALMIC
     Route: 047
     Dates: start: 201601

REACTIONS (3)
  - Drug effect incomplete [Unknown]
  - Vision blurred [Unknown]
  - Visual acuity reduced [Unknown]
